FAERS Safety Report 24647985 (Version 2)
Quarter: 2024Q4

REPORT INFORMATION
  Report Type: Report from Study
  Country: TH (occurrence: TH)
  Receive Date: 20241121
  Receipt Date: 20241224
  Transmission Date: 20250114
  Serious: Yes (Death, Other)
  Sender: BAYER HEALTHCARE PHARMACEUTICALS INC.
  Company Number: TH-BAYER-2024A163503

PATIENT
  Age: 61 Year
  Sex: Female

DRUGS (1)
  1. STIVARGA [Suspect]
     Active Substance: REGORAFENIB MONOHYDRATE
     Indication: Colorectal cancer
     Dosage: 120 MG, QD
     Route: 048
     Dates: start: 20240903, end: 2024

REACTIONS (2)
  - Death [Fatal]
  - Oxygen saturation decreased [Unknown]

NARRATIVE: CASE EVENT DATE: 20241111
